FAERS Safety Report 24338519 (Version 1)
Quarter: 2024Q3

REPORT INFORMATION
  Report Type: Spontaneous
  Country: DE (occurrence: DE)
  Receive Date: 20240919
  Receipt Date: 20240919
  Transmission Date: 20241017
  Serious: Yes (Death)
  Sender: STRIDES
  Company Number: DE-STRIDES ARCOLAB LIMITED-2024SP012085

PATIENT
  Sex: Male

DRUGS (5)
  1. ETOPOSIDE [Suspect]
     Active Substance: ETOPOSIDE
     Indication: Mantle cell lymphoma stage IV
     Dosage: 800 MILLIGRAM/SQ. METER (HIGH DOSE THERAPY)
     Route: 065
  2. CYCLOPHOSPHAMIDE [Suspect]
     Active Substance: CYCLOPHOSPHAMIDE
     Indication: Mantle cell lymphoma stage IV
     Dosage: 120 MILLIGRAM/KILOGRAM (HIGH DOSE THERAPY)
     Route: 065
  3. CYTARABINE [Suspect]
     Active Substance: CYTARABINE
     Indication: Mantle cell lymphoma stage IV
     Dosage: 6000 MILLIGRAM/SQ. METER (HIGH DOSE THERAPY)
     Route: 065
  4. CYTARABINE [Suspect]
     Active Substance: CYTARABINE
     Dosage: 1600 MILLIGRAM/SQ. METER (HIGH DOSE THERAPY)
     Route: 065
  5. MELPHALAN [Suspect]
     Active Substance: MELPHALAN
     Indication: Mantle cell lymphoma stage IV
     Dosage: 140 MILLIGRAM/SQ. METER (HIGH DOSE THERAPY)
     Route: 065

REACTIONS (2)
  - Pneumonitis [Fatal]
  - Toxicity to various agents [Fatal]
